FAERS Safety Report 20031612 (Version 1)
Quarter: 2021Q4

REPORT INFORMATION
  Report Type: Report from Study
  Country: US (occurrence: US)
  Receive Date: 20211103
  Receipt Date: 20211103
  Transmission Date: 20220303
  Serious: Yes (Other)
  Sender: FDA-Public Use
  Company Number: US-ABBVIE-21K-163-4143743-00

PATIENT
  Sex: Male

DRUGS (2)
  1. IMBRUVICA [Suspect]
     Active Substance: IBRUTINIB
     Indication: Product used for unknown indication
     Route: 048
  2. IMBRUVICA [Suspect]
     Active Substance: IBRUTINIB
     Route: 048

REACTIONS (7)
  - Nasal neoplasm [Unknown]
  - Ear neoplasm [Unknown]
  - Abdominal distension [Unknown]
  - Lip swelling [Unknown]
  - Grip strength decreased [Unknown]
  - Peripheral swelling [Unknown]
  - Tumour lysis syndrome [Unknown]
